FAERS Safety Report 12601402 (Version 1)
Quarter: 2016Q3

REPORT INFORMATION
  Report Type: Spontaneous
  Country: US (occurrence: US)
  Receive Date: 20160728
  Receipt Date: 20160728
  Transmission Date: 20161109
  Serious: No
  Sender: FDA-Public Use
  Company Number: US-AMGEN-USASP2016094944

PATIENT
  Age: 64 Year
  Sex: Male

DRUGS (2)
  1. INVOKANA [Concomitant]
     Active Substance: CANAGLIFLOZIN
     Dosage: UNK
     Route: 065
  2. ENBREL [Suspect]
     Active Substance: ETANERCEPT
     Indication: RHEUMATOID ARTHRITIS
     Dosage: 50 MG, QWK
     Route: 058

REACTIONS (4)
  - Back pain [Unknown]
  - Pollakiuria [Unknown]
  - Dysuria [Unknown]
  - Micturition urgency [Unknown]

NARRATIVE: CASE EVENT DATE: 201606
